FAERS Safety Report 11354225 (Version 1)
Quarter: 2015Q3

REPORT INFORMATION
  Report Type: Spontaneous
  Country: US (occurrence: US)
  Receive Date: 20150807
  Receipt Date: 20150807
  Transmission Date: 20151125
  Serious: No
  Sender: FDA-Public Use
  Company Number: US-JNJFOC-20150410165

PATIENT
  Age: 39 Year
  Sex: Female
  Weight: 68.04 kg

DRUGS (9)
  1. SUDAFED 24 HOUR [Suspect]
     Active Substance: PSEUDOEPHEDRINE HYDROCHLORIDE
     Indication: SINUS CONGESTION
     Dosage: 1 DOSE THIS MORNING
     Route: 048
     Dates: start: 20150409, end: 20150409
  2. SUDAFED 24 HOUR [Suspect]
     Active Substance: PSEUDOEPHEDRINE HYDROCHLORIDE
     Indication: SINUS CONGESTION
     Dosage: 1 DOSE TUESDAY NIGHT
     Route: 048
     Dates: start: 20150407, end: 20150407
  3. SUDAFED 24 HOUR [Suspect]
     Active Substance: PSEUDOEPHEDRINE HYDROCHLORIDE
     Indication: NASOPHARYNGITIS
     Dosage: 1 DOSE WEDNESDAY MORNING, 1 DOSE WEDNESDAY EVENING
     Route: 048
     Dates: start: 20150408, end: 20150408
  4. SUDAFED 24 HOUR [Suspect]
     Active Substance: PSEUDOEPHEDRINE HYDROCHLORIDE
     Indication: SINUSITIS
     Dosage: 1 DOSE THIS MORNING
     Route: 048
     Dates: start: 20150409, end: 20150409
  5. SUDAFED 24 HOUR [Suspect]
     Active Substance: PSEUDOEPHEDRINE HYDROCHLORIDE
     Indication: SINUSITIS
     Dosage: 1 DOSE WEDNESDAY MORNING, 1 DOSE WEDNESDAY EVENING
     Route: 048
     Dates: start: 20150408, end: 20150408
  6. SUDAFED 24 HOUR [Suspect]
     Active Substance: PSEUDOEPHEDRINE HYDROCHLORIDE
     Indication: SINUS CONGESTION
     Dosage: 1 DOSE WEDNESDAY MORNING, 1 DOSE WEDNESDAY EVENING
     Route: 048
     Dates: start: 20150408, end: 20150408
  7. SUDAFED 24 HOUR [Suspect]
     Active Substance: PSEUDOEPHEDRINE HYDROCHLORIDE
     Indication: NASOPHARYNGITIS
     Dosage: 1 DOSE THIS MORNING
     Route: 048
     Dates: start: 20150409, end: 20150409
  8. SUDAFED 24 HOUR [Suspect]
     Active Substance: PSEUDOEPHEDRINE HYDROCHLORIDE
     Indication: NASOPHARYNGITIS
     Dosage: 1 DOSE TUESDAY NIGHT
     Route: 048
     Dates: start: 20150407, end: 20150407
  9. SUDAFED 24 HOUR [Suspect]
     Active Substance: PSEUDOEPHEDRINE HYDROCHLORIDE
     Indication: SINUSITIS
     Dosage: 1 DOSE TUESDAY NIGHT
     Route: 048
     Dates: start: 20150407, end: 20150407

REACTIONS (4)
  - Product use issue [Unknown]
  - Incorrect dose administered [Unknown]
  - Dizziness [Not Recovered/Not Resolved]
  - Nausea [Not Recovered/Not Resolved]

NARRATIVE: CASE EVENT DATE: 20150408
